FAERS Safety Report 9556849 (Version 1)
Quarter: 2013Q3

REPORT INFORMATION
  Report Type: Spontaneous
  Country: US (occurrence: US)
  Receive Date: 20130926
  Receipt Date: 20130926
  Transmission Date: 20140515
  Serious: No
  Sender: FDA-Public Use
  Company Number: US-PFIZER INC-2013275912

PATIENT
  Age: 63 Year
  Sex: Female
  Weight: 95.7 kg

DRUGS (3)
  1. CHANTIX [Suspect]
     Indication: SMOKING CESSATION THERAPY
     Dosage: 0.5 MG, 1X/DAY
     Route: 048
     Dates: start: 2012, end: 2012
  2. RAMIPRIL [Concomitant]
     Indication: HYPERTENSION
     Dosage: UNK
  3. RADIOACTIVE IODINE SOLUTION [Concomitant]
     Indication: HYPERTHYROIDISM
     Dosage: UNK

REACTIONS (2)
  - Vitamin D decreased [Unknown]
  - Blood cholesterol increased [Unknown]
